FAERS Safety Report 9647293 (Version 1)
Quarter: 2013Q4

REPORT INFORMATION
  Report Type: Spontaneous
  Country: US (occurrence: US)
  Receive Date: 20131027
  Receipt Date: 20131027
  Transmission Date: 20140711
  Serious: Yes (Other)
  Sender: FDA-Public Use
  Company Number: US-NAPPMUNDI-USA-2013-0107184

PATIENT
  Sex: Female

DRUGS (9)
  1. OXYCONTIN (NDA 22-272) [Suspect]
     Indication: PAIN
     Dosage: 10 MG, QID
     Route: 048
     Dates: start: 2003, end: 20130903
  2. OXYCONTIN (NDA 22-272) [Suspect]
     Dosage: 15 MG, TID
     Route: 048
     Dates: start: 20130903
  3. WELLBUTRIN [Concomitant]
     Indication: PRODUCT USED FOR UNKNOWN INDICATION
     Dosage: 150 MG, DAILY
  4. LEXAPRO [Concomitant]
     Indication: PRODUCT USED FOR UNKNOWN INDICATION
     Dosage: 20 MG, DAILY
  5. PREDNISONE [Concomitant]
     Indication: PRODUCT USED FOR UNKNOWN INDICATION
     Dosage: 5 MG, DAILY
  6. GEODON                             /01487002/ [Concomitant]
     Indication: PRODUCT USED FOR UNKNOWN INDICATION
     Dosage: 20 MG, DAILY
  7. DICYCLOMINE                        /00068601/ [Concomitant]
     Indication: FLATULENCE
     Dosage: 100 MG, DAILY
  8. ASPIRIN [Concomitant]
     Indication: PRODUCT USED FOR UNKNOWN INDICATION
     Dosage: 81 MG, DAILY
  9. LIBRIUM                            /00011501/ [Concomitant]
     Indication: ANXIETY
     Dosage: 10 MG, UNK

REACTIONS (5)
  - Loss of consciousness [Not Recovered/Not Resolved]
  - Arthritis [Unknown]
  - Dysstasia [Not Recovered/Not Resolved]
  - Disorientation [Not Recovered/Not Resolved]
  - Drug ineffective [Unknown]
